FAERS Safety Report 17020324 (Version 1)
Quarter: 2019Q4

REPORT INFORMATION
  Report Type: Spontaneous
  Country: SE (occurrence: SE)
  Receive Date: 20191112
  Receipt Date: 20191112
  Transmission Date: 20200122
  Serious: Yes (Hospitalization, Disabling, Other)
  Sender: FDA-Public Use
  Company Number: SE-PFIZER INC-2019479581

PATIENT
  Age: 68 Year
  Sex: Female

DRUGS (13)
  1. KALCIPOS-D FORTE [Concomitant]
     Active Substance: CALCIUM CARBONATE\CHOLECALCIFEROL
  2. CANDESARTAN. [Concomitant]
     Active Substance: CANDESARTAN
  3. BISOPROLOL [Concomitant]
     Active Substance: BISOPROLOL
  4. IBRANCE [Suspect]
     Active Substance: PALBOCICLIB
     Indication: BREAST CANCER
     Dosage: 125 MG, DAILY
     Dates: start: 20190716, end: 20190802
  5. OMEPRAZOLE. [Concomitant]
     Active Substance: OMEPRAZOLE
  6. SIMVASTATIN. [Concomitant]
     Active Substance: SIMVASTATIN
  7. ALVEDON [Concomitant]
     Active Substance: ACETAMINOPHEN
     Dosage: UNK UNK, AS NEEDED
  8. XARELTO [Concomitant]
     Active Substance: RIVAROXABAN
  9. ATARAX [Concomitant]
     Active Substance: HYDROXYZINE HYDROCHLORIDE
     Dosage: UNK UNK, AS NEEDED
  10. SODIUM BICARBONATE. [Concomitant]
     Active Substance: SODIUM BICARBONATE
  11. FURIX [FUROSEMIDE] [Concomitant]
     Active Substance: FUROSEMIDE
  12. LETROZOL [Concomitant]
     Active Substance: LETROZOLE
     Dosage: UNK
     Dates: start: 20190709
  13. IMOVANE [Concomitant]
     Active Substance: ZOPICLONE
     Dosage: UNK UNK, AS NEEDED

REACTIONS (5)
  - Blood creatinine increased [Not Recovered/Not Resolved]
  - Haemoglobin decreased [Not Recovered/Not Resolved]
  - Acute kidney injury [Not Recovered/Not Resolved]
  - Platelet count decreased [Not Recovered/Not Resolved]
  - Bone marrow toxicity [Not Recovered/Not Resolved]

NARRATIVE: CASE EVENT DATE: 20190802
